FAERS Safety Report 20098113 (Version 1)
Quarter: 2021Q4

REPORT INFORMATION
  Report Type: Spontaneous
  Country: US (occurrence: US)
  Receive Date: 20211122
  Receipt Date: 20211122
  Transmission Date: 20220303
  Serious: No
  Sender: FDA-Public Use
  Company Number: US-JUBILANT PHARMA LTD-2021US000632

PATIENT

DRUGS (4)
  1. RUBY-FILL [Suspect]
     Active Substance: RUBIDIUM CHLORIDE RB-82
     Indication: Scan myocardial perfusion
     Dosage: 55.92 MCI, SINGLE DOSE (REST)
     Dates: start: 20210714, end: 20210714
  2. RUBY-FILL [Suspect]
     Active Substance: RUBIDIUM CHLORIDE RB-82
     Dosage: 20 MCI, SINGLE DOSE (STRESS)
     Dates: start: 20210714, end: 20210714
  3. RUBY-FILL [Suspect]
     Active Substance: RUBIDIUM CHLORIDE RB-82
     Dosage: 55.91 MCI, SINGLE DOSE (REPEATED STRESS)
     Dates: start: 20210715, end: 20210715
  4. Stressing agent [Concomitant]
     Indication: Scan myocardial perfusion
     Dosage: UNK
     Dates: start: 20210714, end: 20210714

REACTIONS (3)
  - Drug ineffective [Unknown]
  - Underdose [Unknown]
  - Device use error [Unknown]

NARRATIVE: CASE EVENT DATE: 20210714
